FAERS Safety Report 6125084-4 (Version None)
Quarter: 2009Q1

REPORT INFORMATION
  Report Type: 
  Country: None (occurrence: None)
  Receive Date: 20090319
  Receipt Date: 20090309
  Transmission Date: 20090719
  Serious: Yes (Other)
  Sender: FDA-Public Use
  Company Number: KR-MERCK-0903USA03137

PATIENT
  Age: 5 Year
  Sex: Male

DRUGS (7)
  1. DECADRON [Suspect]
     Indication: ACUTE MYELOID LEUKAEMIA
     Route: 065
  2. CYTARABINE [Suspect]
     Route: 065
  3. THIOGUANINE [Suspect]
     Route: 065
  4. DAUNORUBICIN [Suspect]
     Route: 065
  5. ETOPOSIDE [Suspect]
     Route: 065
  6. BUSULFAN [Suspect]
     Route: 065
  7. CYCLOPHOSPHAMIDE [Suspect]
     Route: 065

REACTIONS (1)
  - SALIVARY GLAND CANCER [None]
